FAERS Safety Report 25884129 (Version 1)
Quarter: 2025Q4

REPORT INFORMATION
  Report Type: Spontaneous
  Country: CN (occurrence: CN)
  Receive Date: 20251006
  Receipt Date: 20251006
  Transmission Date: 20260118
  Serious: Yes (Hospitalization, Other)
  Sender: DAIICHI
  Company Number: CN-DSJP-DS-2025-167494-CN

PATIENT
  Age: 44 Year
  Sex: Female
  Weight: 57 kg

DRUGS (2)
  1. EDOXABAN [Suspect]
     Active Substance: EDOXABAN
     Indication: Deep vein thrombosis
     Dosage: 30 MG, QD
     Route: 048
     Dates: start: 20240705, end: 20250919
  2. CEFOPERAZONE SODIUM\SULBACTAM SODIUM [Concomitant]
     Active Substance: CEFOPERAZONE SODIUM\SULBACTAM SODIUM
     Indication: Infection
     Dosage: 3 G, BID
     Route: 041
     Dates: start: 20250915, end: 20250919

REACTIONS (9)
  - Metastases to lymph nodes [Unknown]
  - Gastrointestinal disorder [Unknown]
  - Cancer pain [Unknown]
  - Hypothyroidism [Unknown]
  - Cholelithiasis [Unknown]
  - Ascites [Unknown]
  - Anaemia [Unknown]
  - Haemoptysis [Unknown]
  - Haemorrhage subcutaneous [Recovering/Resolving]

NARRATIVE: CASE EVENT DATE: 20250919
